FAERS Safety Report 6312005-4 (Version None)
Quarter: 2009Q4

REPORT INFORMATION
  Report Type: 
  Country: None (occurrence: None)
  Receive Date: 20090817
  Receipt Date: 20090807
  Transmission Date: 20100525
  Serious: Yes (Disabling, Other)
  Sender: FDA-Public Use
  Company Number: US-BAXTER-2009BH012636

PATIENT
  Age: 60 Year
  Sex: Female

DRUGS (8)
  1. PHENERGAN HCL [Suspect]
     Indication: DRUG USE FOR UNKNOWN INDICATION
     Route: 042
     Dates: start: 20080301, end: 20080301
  2. MORPHINE SULFATE [Suspect]
     Indication: DRUG USE FOR UNKNOWN INDICATION
     Route: 042
     Dates: start: 20080301, end: 20080301
  3. MORPHINE SULFATE [Suspect]
     Route: 042
     Dates: start: 20080301, end: 20080301
  4. SODIUM CHLORIDE 0.9% IN PLASTIC CONTAINER [Suspect]
     Indication: DRUG USE FOR UNKNOWN INDICATION
     Route: 040
     Dates: start: 20080301, end: 20080301
  5. DIPHENHYDRAMINE HCL [Suspect]
     Indication: DRUG USE FOR UNKNOWN INDICATION
     Route: 040
     Dates: start: 20080301, end: 20080301
  6. TEGRETOL [Concomitant]
     Indication: DRUG USE FOR UNKNOWN INDICATION
     Route: 065
  7. EFFEXOR [Concomitant]
     Indication: DRUG USE FOR UNKNOWN INDICATION
     Route: 065
  8. ENALAPRIL MALEATE [Concomitant]
     Indication: DRUG USE FOR UNKNOWN INDICATION
     Route: 065

REACTIONS (5)
  - EXTREMITY NECROSIS [None]
  - GANGRENE [None]
  - INFUSION SITE NECROSIS [None]
  - INFUSION SITE PAIN [None]
  - PERIPHERAL COLDNESS [None]
